FAERS Safety Report 12158998 (Version 2)
Quarter: 2020Q3

REPORT INFORMATION
  Report Type: Spontaneous
  Country: CO (occurrence: CO)
  Receive Date: 20160308
  Receipt Date: 20160315
  Transmission Date: 20201104
  Serious: Yes (Hospitalization, Other)
  Sender: FDA-Public Use
  Company Number: CO-ROCHE-1722501

PATIENT
  Age: 73 Year
  Sex: Female

DRUGS (1)
  1. IBANDRONIC ACID. [Suspect]
     Active Substance: IBANDRONIC ACID
     Indication: OSTEOPOROSIS
     Route: 042
     Dates: start: 201403

REACTIONS (3)
  - Vomiting [Recovered/Resolved]
  - Arrhythmia [Recovered/Resolved with Sequelae]
  - Cellulitis [Recovered/Resolved]

NARRATIVE: CASE EVENT DATE: 20160304
